FAERS Safety Report 7422680-9 (Version None)
Quarter: 2011Q2

REPORT INFORMATION
  Report Type: 
  Country: None (occurrence: None)
  Receive Date: 20110419
  Receipt Date: 20110407
  Transmission Date: 20111010
  Serious: Yes (Other)
  Sender: FDA-Public Use
  Company Number: DE-ELI_LILLY_AND_COMPANY-DE201104001786

PATIENT
  Age: 76 Year
  Sex: Female

DRUGS (13)
  1. SEROQUEL [Concomitant]
     Dosage: 100 MG, UNK
     Route: 048
     Dates: start: 20100818, end: 20100818
  2. LORAZEPAM [Concomitant]
     Dosage: 1 MG, UNK
     Route: 048
     Dates: start: 20100819, end: 20100901
  3. LORAZEPAM [Concomitant]
     Dosage: 0.5 MG, UNK
     Route: 048
     Dates: start: 20100902, end: 20100908
  4. MIRTAZAPIN [Concomitant]
     Dosage: 30 MG, UNK
     Route: 048
     Dates: start: 20100621
  5. SEROQUEL [Concomitant]
     Dosage: 50 MG, UNK
     Dates: start: 20100825, end: 20100831
  6. RAMIPRIL [Concomitant]
     Dosage: 2.5 MG, UNK
     Route: 048
  7. SEROQUEL [Concomitant]
     Dosage: 150 MG, UNK
     Dates: start: 20100819
  8. HYDROCHLOROTHIAZIDE [Concomitant]
     Dosage: 12.5 MG, UNK
     Route: 048
  9. DOXEPIN [Concomitant]
     Dosage: 50 MG, UNK
     Route: 048
     Dates: start: 20100813, end: 20100818
  10. COTRIM [Concomitant]
     Dosage: 1920 MG, UNK
     Route: 048
     Dates: start: 20100816, end: 20100820
  11. ZYPREXA [Suspect]
     Indication: DEPRESSION
     Dosage: 10 MG, UNK
     Route: 048
     Dates: start: 20100713, end: 20100817
  12. ASPIRIN [Concomitant]
     Dosage: 100 MG, UNK
     Route: 048
  13. PROMETHAZINE [Concomitant]
     Dosage: 50 MG, UNK
     Route: 048
     Dates: start: 20100622, end: 20100820

REACTIONS (5)
  - HYPOTENSION [None]
  - FALL [None]
  - SWELLING [None]
  - OFF LABEL USE [None]
  - SYNCOPE [None]
